FAERS Safety Report 13409760 (Version 1)
Quarter: 2017Q2

REPORT INFORMATION
  Report Type: Report from Study
  Country: US (occurrence: US)
  Receive Date: 20170406
  Receipt Date: 20170406
  Transmission Date: 20170830
  Serious: Yes (Other)
  Sender: FDA-Public Use
  Company Number: US-ARIAD-2016US007371

PATIENT
  Sex: Female

DRUGS (3)
  1. ICLUSIG [Suspect]
     Active Substance: PONATINIB
     Dosage: 30 MG, QD
     Route: 048
  2. ICLUSIG [Suspect]
     Active Substance: PONATINIB
     Dosage: 30 MG, QD
     Route: 048
  3. ICLUSIG [Suspect]
     Active Substance: PONATINIB
     Indication: CHRONIC MYELOID LEUKAEMIA
     Dosage: 30 MG, QD
     Route: 048
     Dates: start: 20161119

REACTIONS (12)
  - Dysuria [Not Recovered/Not Resolved]
  - Pleural effusion [Unknown]
  - Vomiting [Unknown]
  - Tooth disorder [Not Recovered/Not Resolved]
  - Dizziness [Not Recovered/Not Resolved]
  - Hyperthyroidism [Unknown]
  - Dry skin [Unknown]
  - Back pain [Not Recovered/Not Resolved]
  - Constipation [Unknown]
  - Pain in extremity [Not Recovered/Not Resolved]
  - Nausea [Unknown]
  - Headache [Not Recovered/Not Resolved]
